FAERS Safety Report 6717206-9 (Version None)
Quarter: 2010Q2

REPORT INFORMATION
  Report Type: 
  Country: None (occurrence: None)
  Receive Date: 20100510
  Receipt Date: 20100428
  Transmission Date: 20101027
  Serious: Yes (Hospitalization, Other)
  Sender: FDA-Public Use
  Company Number: PHHY2010JP27549

PATIENT
  Sex: Female

DRUGS (5)
  1. ZOLEDRONATE T29581+ [Suspect]
     Indication: BREAST CANCER
     Dosage: 4MG DILUTED 100 ML
     Route: 042
     Dates: start: 20071019, end: 20100402
  2. ZOLEDRONATE T29581+ [Suspect]
     Indication: METASTASES TO BONE
  3. FEMARA [Concomitant]
     Dosage: 2.5 MG, UNK
     Route: 048
  4. PARIET [Concomitant]
     Dosage: 10 MG, UNK
     Route: 048
  5. MAGMITT [Concomitant]
     Dosage: 1000 MG, UNK
     Route: 048

REACTIONS (4)
  - ASCITES [None]
  - BLOOD CREATININE INCREASED [None]
  - BLOOD UREA INCREASED [None]
  - BREAST CANCER [None]
